FAERS Safety Report 7682532-6 (Version None)
Quarter: 2011Q3

REPORT INFORMATION
  Report Type: 
  Country: None (occurrence: None)
  Receive Date: 20110810
  Receipt Date: 20110728
  Transmission Date: 20111222
  Serious: Yes (Disabling)
  Sender: FDA-Public Use
  Company Number: 2011MA010827

PATIENT
  Age: 57 Year
  Sex: Male

DRUGS (1)
  1. FINASTERIDE [Suspect]
     Indication: BENIGN PROSTATIC HYPERPLASIA
     Dosage: 5 MG; QD; PO
     Route: 048

REACTIONS (7)
  - IMPAIRED WORK ABILITY [None]
  - ANHEDONIA [None]
  - PSYCHIATRIC SYMPTOM [None]
  - DISTURBANCE IN ATTENTION [None]
  - UNEVALUABLE EVENT [None]
  - FATIGUE [None]
  - SELF ESTEEM DECREASED [None]
